FAERS Safety Report 21166695 (Version 5)
Quarter: 2022Q3

REPORT INFORMATION
  Report Type: Spontaneous
  Country: ES (occurrence: ES)
  Receive Date: 20220803
  Receipt Date: 20220822
  Transmission Date: 20221027
  Serious: Yes (Hospitalization, Other)
  Sender: FDA-Public Use
  Company Number: ES-KRKA-ES2022K09070LIT

PATIENT
  Age: 81 Year
  Sex: Female

DRUGS (15)
  1. EPLERENONE [Suspect]
     Active Substance: EPLERENONE
     Dosage: 0.5 MG, ALTERNATE DAY (1/2-0-0)
     Route: 065
  2. APIXABAN [Suspect]
     Active Substance: APIXABAN
     Dosage: 5 MG, 2X/DAY (1-0-1)
     Route: 065
  3. ATORVASTATIN CALCIUM [Suspect]
     Active Substance: ATORVASTATIN CALCIUM
     Indication: Dyslipidaemia
     Dosage: 40 MG, 1X PER DAY, 0-0-1
     Route: 065
  4. AMLODIPINE BESYLATE [Suspect]
     Active Substance: AMLODIPINE BESYLATE
     Indication: Hypertension
     Dosage: 5 MG, 1X PER DAY, 0-0-1
     Route: 065
  5. METILDIGOXIN [Suspect]
     Active Substance: METILDIGOXIN
     Dosage: 0.1MG (1-0-0)
     Route: 065
  6. FUROSEMIDE [Suspect]
     Active Substance: FUROSEMIDE
     Dosage: (1-0 -1/2)
     Route: 065
  7. ENALAPRIL [Suspect]
     Active Substance: ENALAPRIL
     Dosage: 5MG(1/2-0-1/2)
     Route: 065
  8. BETAMETHASONE DIPROPIONATE\CALCIPOTRIENE [Suspect]
     Active Substance: BETAMETHASONE DIPROPIONATE\CALCIPOTRIENE
     Dosage: 50 MCG/0.5 MG/G GEL AND FOAM
     Route: 065
  9. CHOLECALCIFEROL [Suspect]
     Active Substance: CHOLECALCIFEROL
     Dosage: 25000 IU, PER MONTH
     Route: 065
  10. ACENOCOUMAROL [Suspect]
     Active Substance: ACENOCOUMAROL
     Indication: Anticoagulant therapy
     Dosage: UNK
     Route: 065
     Dates: start: 2013
  11. OMEPRAZOLE [Suspect]
     Active Substance: OMEPRAZOLE
     Dosage: 1-0-0
     Route: 065
  12. IBANDRONIC ACID [Suspect]
     Active Substance: IBANDRONIC ACID
     Dosage: 150 MG (1-0-0)
     Route: 065
  13. BRINZOLAMIDE [Suspect]
     Active Substance: BRINZOLAMIDE
     Dosage: 10 MG COL (1-0-1)
     Route: 065
  14. MOMETASONE [Suspect]
     Active Substance: MOMETASONE
     Dosage: 0.1 %
     Route: 065
  15. ACETAMINOPHEN [Concomitant]
     Active Substance: ACETAMINOPHEN
     Indication: Hypertension
     Dosage: UNK, AS NEEDED
     Route: 065

REACTIONS (6)
  - Dizziness [Unknown]
  - Dyspnoea [Unknown]
  - Bradycardia [Unknown]
  - Wound haemorrhage [Unknown]
  - Wrong technique in product usage process [Unknown]
  - Off label use [Unknown]

NARRATIVE: CASE EVENT DATE: 20220201
